FAERS Safety Report 13542082 (Version 1)
Quarter: 2017Q2

REPORT INFORMATION
  Report Type: Not Available
  Country: FR (occurrence: FR)
  Receive Date: 20170512
  Receipt Date: 20170512
  Transmission Date: 20170830
  Serious: Yes (Other)
  Sender: FDA-Public Use
  Company Number: FR-MIDATECHPHARMA-2017-FR-000020

PATIENT
  Age: 65 Year
  Sex: Male

DRUGS (15)
  1. ENOXAPARIN [Concomitant]
     Active Substance: ENOXAPARIN
  2. TACROLIMUS. [Suspect]
     Active Substance: TACROLIMUS
     Dosage: 5 MG/DAY
     Route: 065
     Dates: start: 20120427
  3. VALGANCICLOVIR. [Concomitant]
     Active Substance: VALGANCICLOVIR
  4. ORAVIG [Suspect]
     Active Substance: MICONAZOLE
     Dosage: 50 MG/DAY
     Route: 050
     Dates: start: 20120517, end: 20120525
  5. PARACETAMOL [Concomitant]
     Active Substance: ACETAMINOPHEN
  6. POSACONAZOLE [Concomitant]
     Active Substance: POSACONAZOLE
     Dosage: 600 MG/DAY
  7. HYDROXYZINE [Concomitant]
     Active Substance: HYDROXYZINE HYDROCHLORIDE
  8. TRAMADOL. [Concomitant]
     Active Substance: TRAMADOL
  9. SULFADOXINE-PYRIMETHAMINE [Concomitant]
  10. CALCIUM FOLINATE [Concomitant]
     Active Substance: LEUCOVORIN CALCIUM
  11. PRAVASTATIN. [Concomitant]
     Active Substance: PRAVASTATIN
  12. GLARGINE INSULIN [Concomitant]
     Active Substance: INSULIN GLARGINE
  13. ESOMEPRAZOLE [Concomitant]
     Active Substance: ESOMEPRAZOLE
  14. MYCOPHENOLATE MOFETIL. [Concomitant]
     Active Substance: MYCOPHENOLATE MOFETIL
     Dosage: 2 G/DAY
  15. PREDNISONE. [Concomitant]
     Active Substance: PREDNISONE
     Dosage: 30 MG/DAY

REACTIONS (2)
  - Toxicity to various agents [Unknown]
  - Drug interaction [Unknown]
